FAERS Safety Report 5648389-X (Version None)
Quarter: 2008Q1

REPORT INFORMATION
  Report Type: 
  Country: None (occurrence: None)
  Receive Date: 20080304
  Receipt Date: 20080221
  Transmission Date: 20080703
  Serious: Yes (Hospitalization)
  Sender: FDA-Public Use
  Company Number: US-AMGEN-QUU266568

PATIENT
  Sex: Male

DRUGS (1)
  1. ENBREL [Suspect]
     Indication: PSORIATIC ARTHROPATHY
     Route: 058
     Dates: start: 20070301, end: 20080201

REACTIONS (5)
  - BLOOD PRESSURE INCREASED [None]
  - MENINGITIS VIRAL [None]
  - MUSCULAR WEAKNESS [None]
  - OCULAR HYPERAEMIA [None]
  - OEDEMA PERIPHERAL [None]
